FAERS Safety Report 9234129 (Version 2)
Quarter: 2013Q2

REPORT INFORMATION
  Report Type: Report from Study
  Country: US (occurrence: US)
  Receive Date: 20130416
  Receipt Date: 20130520
  Transmission Date: 20140414
  Serious: Yes (Other)
  Sender: FDA-Public Use
  Company Number: US-ROCHE-1209659

PATIENT
  Sex: Female

DRUGS (1)
  1. PLACEBO [Suspect]
     Indication: SINUSITIS
     Route: 065

REACTIONS (1)
  - Hilar lymphadenopathy [Unknown]
